FAERS Safety Report 13177990 (Version 1)
Quarter: 2017Q1

REPORT INFORMATION
  Report Type: Spontaneous
  Country: US (occurrence: US)
  Receive Date: 20170202
  Receipt Date: 20170202
  Transmission Date: 20170428
  Serious: Yes (Other)
  Sender: FDA-Public Use
  Company Number: US-ASTRAZENECA-2017SE10121

PATIENT
  Age: 26724 Day
  Sex: Male
  Weight: 87.8 kg

DRUGS (11)
  1. NUPLAZID [Suspect]
     Active Substance: PIMAVANSERIN TARTRATE
     Indication: HALLUCINATION
     Route: 048
     Dates: start: 20161031, end: 20161031
  2. COMBIGAN [Concomitant]
     Active Substance: BRIMONIDINE TARTRATE\TIMOLOL MALEATE
  3. RIVASTIGMINE. [Concomitant]
     Active Substance: RIVASTIGMINE
  4. SEROQUEL [Suspect]
     Active Substance: QUETIAPINE FUMARATE
     Indication: PRODUCT USED FOR UNKNOWN INDICATION
     Route: 048
  5. NUPLAZID [Suspect]
     Active Substance: PIMAVANSERIN TARTRATE
     Indication: PARKINSONISM
     Route: 048
     Dates: start: 20161031, end: 20161031
  6. SENNA S [Concomitant]
     Active Substance: DOCUSATE SODIUM\SENNA LEAF
  7. PARCOPA [Concomitant]
     Active Substance: CARBIDOPA\LEVODOPA
  8. BENZTROPINE [Concomitant]
     Active Substance: BENZTROPINE
  9. COGENTIN [Concomitant]
     Active Substance: BENZTROPINE MESYLATE
  10. ESCITALOPRAM [Concomitant]
     Active Substance: ESCITALOPRAM OXALATE
  11. METFORMIN [Concomitant]
     Active Substance: METFORMIN HYDROCHLORIDE

REACTIONS (14)
  - Asthma [Unknown]
  - Dysphagia [Recovered/Resolved]
  - Eye swelling [Unknown]
  - Drooling [Unknown]
  - Secretion discharge [Unknown]
  - Hallucination [Unknown]
  - Depressed level of consciousness [Recovered/Resolved]
  - Blood glucose increased [Recovering/Resolving]
  - Weight increased [Unknown]
  - Speech disorder [Recovered/Resolved]
  - Swelling face [Unknown]
  - Oedema peripheral [Recovering/Resolving]
  - Hypophagia [Recovered/Resolved]
  - Dysphonia [Recovered/Resolved]

NARRATIVE: CASE EVENT DATE: 20161116
